FAERS Safety Report 16544008 (Version 4)
Quarter: 2020Q3

REPORT INFORMATION
  Report Type: Spontaneous
  Country: US (occurrence: US)
  Receive Date: 20190709
  Receipt Date: 20200827
  Transmission Date: 20201102
  Serious: Yes (Life-Threatening, Hospitalization)
  Sender: FDA-Public Use
  Company Number: US-BAYER-2019-125451

PATIENT
  Age: 52 Year
  Sex: Female
  Weight: 58 kg

DRUGS (4)
  1. VITAMIN D3 [Concomitant]
     Active Substance: CHOLECALCIFEROL
     Dosage: 1 DF, QD
     Route: 048
  2. MULTIVITAMINUM [Concomitant]
     Active Substance: VITAMINS
     Route: 048
  3. CALCIUM CARBONATE;COLECALCIFEROL [Concomitant]
     Active Substance: CALCIUM CARBONATE\CHOLECALCIFEROL
     Dosage: 1 DF, QD
     Route: 048
  4. ALEVE [Suspect]
     Active Substance: NAPROXEN SODIUM
     Indication: PAIN
     Dosage: 2 DF, ONCE
     Route: 048
     Dates: start: 20190628, end: 20190628

REACTIONS (16)
  - Adverse event [Recovered/Resolved]
  - Illness [Recovered/Resolved]
  - Erythema [Recovered/Resolved]
  - Rash [Recovered/Resolved]
  - Loss of consciousness [Recovered/Resolved]
  - Hypotension [Recovered/Resolved]
  - Heart rate increased [Recovered/Resolved]
  - Headache [Recovered/Resolved]
  - Conjunctival hyperaemia [Recovered/Resolved]
  - Blood pressure decreased [Recovered/Resolved]
  - Wheezing [Recovered/Resolved]
  - Pruritus [Recovered/Resolved]
  - Vulvovaginal pruritus [Recovered/Resolved]
  - Urticaria [Recovered/Resolved]
  - Anaphylactic reaction [Recovered/Resolved]
  - Abdominal discomfort [Recovered/Resolved]

NARRATIVE: CASE EVENT DATE: 20190628
